FAERS Safety Report 9335935 (Version 1)
Quarter: 2013Q2

REPORT INFORMATION
  Report Type: Spontaneous
  Country: US (occurrence: US)
  Receive Date: 20130606
  Receipt Date: 20130606
  Transmission Date: 20140414
  Serious: No
  Sender: FDA-Public Use
  Company Number: US-AMGEN-USASP2013006707

PATIENT
  Age: 66 Year
  Sex: Female
  Weight: 49.89 kg

DRUGS (16)
  1. PROLIA [Suspect]
     Indication: OSTEOPOROSIS
     Dosage: 60 MG, Q6MO
     Route: 058
     Dates: start: 20120724
  2. SYNTHROID [Concomitant]
  3. VERAPAMIL [Concomitant]
  4. AMITRIPTYLINE [Concomitant]
  5. CRESTOR [Concomitant]
  6. PREVACID [Concomitant]
  7. RANITIDINE [Concomitant]
  8. VAGIFEM [Concomitant]
  9. SPIRONOLACTONE [Concomitant]
  10. POTASSIUM [Concomitant]
  11. MULTIVITAMIN                       /00097801/ [Concomitant]
  12. FOLIC ACID [Concomitant]
  13. B COMPLEX                          /00212701/ [Concomitant]
  14. CALCIUM WITH VITAMIN D             /00944201/ [Concomitant]
  15. SALMON OIL [Concomitant]
  16. BABY ASPIRIN [Concomitant]
     Dosage: 81 MG, QD

REACTIONS (3)
  - Burning sensation [Recovered/Resolved]
  - Pain [Recovered/Resolved]
  - Back pain [Recovered/Resolved]
